FAERS Safety Report 10572825 (Version 2)
Quarter: 2014Q4

REPORT INFORMATION
  Report Type: Spontaneous
  Country: SE (occurrence: None)
  Receive Date: 20141106
  Receipt Date: 20141202
  Transmission Date: 20150529
  Serious: Yes (Other)
  Sender: FDA-Public Use
  Company Number: 2014-003217

PATIENT
  Age: 57 Year
  Sex: Female

DRUGS (33)
  1. PROLIA [Suspect]
     Active Substance: DENOSUMAB
     Indication: OSTEOPOROSIS
     Dosage: 60 MG, 1 EVERY 6 MONTHS, OTHER
     Route: 050
     Dates: start: 20120515, end: 20131223
  2. GLYTRIN (GLYCERYL TRINITRATE) [Concomitant]
  3. OXASCAND (OXAZEPAM) [Concomitant]
  4. ZOPICLONE (ZOPICLONE) [Concomitant]
     Active Substance: ZOPICLONE
  5. PREDNISOLONE (PREDNISOLONE) [Concomitant]
     Active Substance: PREDNISOLONE
  6. METHOTREXATE (METHOTREXATE) [Concomitant]
     Active Substance: METHOTREXATE
  7. FOLACIN (FOLIC ACID) [Concomitant]
  8. OMEPRAZOLE (OMEPRAZOLE) [Concomitant]
     Active Substance: OMEPRAZOLE
  9. INDERAL [Concomitant]
     Active Substance: PROPRANOLOL HYDROCHLORIDE
  10. ALVEDON (PARACETAMOL) [Concomitant]
  11. CILAXORAL (SODIUM PICOSULFATE) [Concomitant]
  12. DITROPAN (OXYBUTYNIN HYDROCHLORIDE) [Concomitant]
  13. EMGESAN (MAGNESIUM HYDROXIDE) [Concomitant]
  14. FOSAMAX [Suspect]
     Active Substance: ALENDRONATE SODIUM
     Indication: OSTEOPOROSIS
     Dosage: 70 MG ONCE WEEKLY, ORAL
     Route: 048
     Dates: start: 200604, end: 200905
  15. KALCIPOS-D (CALCIUM CARBONATE, COLECALCIFEROL) [Concomitant]
  16. PAPAVERINE (PAPAVERINE) [Concomitant]
  17. FENTANYL (FENTANYL) [Concomitant]
     Active Substance: FENTANYL
  18. METHADONE [Concomitant]
     Active Substance: METHADONE HYDROCHLORIDE
  19. FURIX (FUROSEMIDE) [Concomitant]
     Active Substance: FUROSEMIDE
  20. OXYNORM (OXYCODONE HYDROCHLORIDE) (OXYCODONE HYDROCHLORIDE) [Concomitant]
     Active Substance: OXYCODONE HYDROCHLORIDE
  21. ACLASTA [Suspect]
     Active Substance: ZOLEDRONIC ACID
     Indication: OSTEOPOROSIS
     Dosage: 100 MG ONE EVERY ONE YEAR, OTHER
     Route: 050
     Dates: start: 20090515, end: 20100507
  22. FENTANYL (FENTANYL) [Concomitant]
     Active Substance: FENTANYL
  23. MOVICOL (MACROGOL, POTASSIUM CHLORIDE, SODIUM BICARBONATE) [Concomitant]
  24. BEHEPAN (CYANOCOBALAMIN) [Concomitant]
  25. ATROVENT [Concomitant]
     Active Substance: IPRATROPIUM BROMIDE
  26. ORUDIS (KETOPROFEN) [Concomitant]
  27. SUMATRIPTAN (SUMATRIPTAN) [Concomitant]
     Active Substance: SUMATRIPTAN
  28. OPTINATE SEPTIMUM [Suspect]
     Active Substance: RISEDRONATE SODIUM
     Indication: OSTEOPOROSIS
     Dosage: 35 MG ONCE WEEKLY, ORAL
     Route: 048
     Dates: start: 200501, end: 200604
  29. LEVAXIN (LEVOTHYROXINE SODIUM) [Concomitant]
  30. DUROFERON (FERROUS SULFATE) [Concomitant]
  31. INDIVINA (ESTRADIOL VALERATE, MEDROXYPROGESTERONE ACETATE) [Concomitant]
  32. POSTAFEN (MECLOZINE HYDROCHLORIDE) [Concomitant]
     Active Substance: MECLIZINE MONOHYDROCHLORIDE
  33. ACETYLCYSTEINE (ACETYLCYSTEINE) [Concomitant]

REACTIONS (1)
  - Atypical femur fracture [None]

NARRATIVE: CASE EVENT DATE: 20140514
